FAERS Safety Report 10276481 (Version 2)
Quarter: 2014Q3

REPORT INFORMATION
  Report Type: Spontaneous
  Country: US (occurrence: US)
  Receive Date: 20140703
  Receipt Date: 20140723
  Transmission Date: 20150326
  Serious: Yes (Other)
  Sender: FDA-Public Use
  Company Number: US-009507513-1407USA000900

PATIENT
  Age: 35 Year
  Sex: Male

DRUGS (7)
  1. PYRIMETHAMINE [Concomitant]
     Active Substance: PYRIMETHAMINE
     Indication: PROPHYLAXIS
  2. ISENTRESS [Suspect]
     Active Substance: RALTEGRAVIR POTASSIUM
     Indication: ANTIRETROVIRAL THERAPY
  3. LEUCOVORIN [Concomitant]
     Active Substance: LEUCOVORIN
     Indication: PROPHYLAXIS
  4. ABACAVIR [Suspect]
     Active Substance: ABACAVIR
     Indication: ANTIRETROVIRAL THERAPY
     Dosage: UNK
  5. LAMIVUDINE. [Suspect]
     Active Substance: LAMIVUDINE
     Indication: ANTIRETROVIRAL THERAPY
     Dosage: UNK
  6. SULFADIAZINE. [Concomitant]
     Active Substance: SULFADIAZINE
     Indication: PROPHYLAXIS
  7. ISENTRESS [Suspect]
     Active Substance: RALTEGRAVIR POTASSIUM
     Indication: ACQUIRED IMMUNODEFICIENCY SYNDROME
     Dosage: UNK
     Route: 048

REACTIONS (3)
  - Generalised tonic-clonic seizure [Recovering/Resolving]
  - Cerebral toxoplasmosis [Recovering/Resolving]
  - Immune reconstitution inflammatory syndrome [Recovering/Resolving]
